FAERS Safety Report 16873831 (Version 2)
Quarter: 2019Q4

REPORT INFORMATION
  Report Type: Spontaneous
  Country: HR (occurrence: HR)
  Receive Date: 20191001
  Receipt Date: 20191015
  Transmission Date: 20200122
  Serious: Yes (Hospitalization, Other)
  Sender: FDA-Public Use
  Company Number: HR-JNJFOC-20190939368

PATIENT
  Sex: Male
  Weight: 62 kg

DRUGS (3)
  1. PIGREL [Concomitant]
     Dosage: 75 MG
  2. RIVAROXABAN [Suspect]
     Active Substance: RIVAROXABAN
     Indication: ATRIAL FIBRILLATION
     Dosage: 15 MG
     Route: 048
  3. RIVAROXABAN [Suspect]
     Active Substance: RIVAROXABAN
     Indication: PRODUCT USED FOR UNKNOWN INDICATION
     Dosage: 10 MG
     Route: 048

REACTIONS (10)
  - Renal impairment [Unknown]
  - Cardiac failure [Unknown]
  - Fluid overload [Unknown]
  - Peripheral swelling [Unknown]
  - Ventricular hypokinesia [Unknown]
  - Thrombophlebitis superficial [Unknown]
  - Gastrointestinal haemorrhage [Unknown]
  - Dyspnoea exertional [Unknown]
  - Weight decreased [Unknown]
  - Angiocardiogram [Unknown]

NARRATIVE: CASE EVENT DATE: 201808
